FAERS Safety Report 9137546 (Version 2)
Quarter: 2014Q2

REPORT INFORMATION
  Report Type: Spontaneous
  Country: US (occurrence: US)
  Receive Date: 20130304
  Receipt Date: 20140408
  Transmission Date: 20141212
  Serious: Yes (Other)
  Sender: FDA-Public Use
  Company Number: US-BAYER-2013-026835

PATIENT
  Age: 26 Year
  Sex: Female
  Weight: 50.34 kg

DRUGS (4)
  1. YAZ [Suspect]
  2. YASMIN [Suspect]
  3. OCELLA [Suspect]
  4. AMPHETAMINE SALTS [Concomitant]
     Dosage: 20 MG, TID
     Route: 048
     Dates: start: 20110927

REACTIONS (6)
  - Cholecystectomy [None]
  - Cholecystitis acute [None]
  - Emotional distress [None]
  - Pain [None]
  - Injury [None]
  - Pain [None]
